FAERS Safety Report 12480336 (Version 1)
Quarter: 2016Q2

REPORT INFORMATION
  Report Type: Spontaneous
  Country: GB (occurrence: GB)
  Receive Date: 20160620
  Receipt Date: 20160620
  Transmission Date: 20160815
  Serious: Yes (Hospitalization, Other)
  Sender: FDA-Public Use
  Company Number: GB-SUN PHARMACEUTICAL INDUSTRIES LTD-2016RR-118707

PATIENT
  Age: 65 Year
  Sex: Male
  Weight: 82 kg

DRUGS (11)
  1. CO-AMOXICLAV [Suspect]
     Active Substance: AMOXICILLIN\CLAVULANIC ACID
     Indication: LOWER RESPIRATORY TRACT INFECTION
     Dosage: 1 DF, TID
     Route: 065
     Dates: start: 20160404, end: 20160411
  2. COLESTYRAMINE [Concomitant]
     Active Substance: CHOLESTYRAMINE
     Indication: PRODUCT USED FOR UNKNOWN INDICATION
     Dosage: TAKE 1 - 2 SACHETS DAILY
     Route: 065
     Dates: start: 20160428
  3. SALBUTAMOL [Concomitant]
     Active Substance: ALBUTEROL
     Indication: PRODUCT USED FOR UNKNOWN INDICATION
     Dosage: AS DIRECTED.
     Route: 065
     Dates: start: 20160415, end: 20160515
  4. PREDNISOLONE. [Concomitant]
     Active Substance: PREDNISOLONE
     Indication: PRODUCT USED FOR UNKNOWN INDICATION
     Dosage: 30 MG, QD
     Route: 065
     Dates: start: 20160429, end: 20160504
  5. DIHYDROCODEINE [Concomitant]
     Active Substance: DIHYDROCODEINE
     Indication: PRODUCT USED FOR UNKNOWN INDICATION
     Dosage: 1 OR 2 4-6 HOURLY AS REQUIRED
     Route: 065
     Dates: start: 20160104
  6. CHLORPHENAMINE [Concomitant]
     Active Substance: CHLORPHENIRAMINE MALEATE
     Indication: PRODUCT USED FOR UNKNOWN INDICATION
     Dosage: 1 DF, TID
     Route: 065
     Dates: start: 20160418, end: 20160516
  7. METOCLOPRAMIDE. [Concomitant]
     Active Substance: METOCLOPRAMIDE
     Indication: PRODUCT USED FOR UNKNOWN INDICATION
     Dosage: 1 DF, TID
     Route: 065
     Dates: start: 20160418, end: 20160502
  8. NAPROXEN. [Concomitant]
     Active Substance: NAPROXEN
     Indication: PAIN
     Dosage: ONLY IF NEEDED.
     Route: 065
     Dates: start: 20160104
  9. OMEPRAZOLE. [Concomitant]
     Active Substance: OMEPRAZOLE
     Indication: PRODUCT USED FOR UNKNOWN INDICATION
     Dosage: 1 DF, QD
     Route: 065
     Dates: start: 20140319
  10. DOXYCYCLINE. [Suspect]
     Active Substance: DOXYCYCLINE
     Indication: LOWER RESPIRATORY TRACT INFECTION
     Dosage: UNK
     Route: 065
     Dates: start: 20160418
  11. AMOXICILLIN. [Suspect]
     Active Substance: AMOXICILLIN
     Indication: LOWER RESPIRATORY TRACT INFECTION
     Dosage: 1 DF, TID
     Route: 065
     Dates: start: 20160329, end: 20160405

REACTIONS (6)
  - Crepitations [Unknown]
  - Cough [Unknown]
  - Jaundice [Unknown]
  - Cholestasis [Unknown]
  - Hepatic enzyme abnormal [Unknown]
  - Pruritus generalised [Unknown]

NARRATIVE: CASE EVENT DATE: 20160525
